FAERS Safety Report 9580467 (Version 1)
Quarter: 2013Q4

REPORT INFORMATION
  Report Type: Spontaneous
  Country: US (occurrence: None)
  Receive Date: 20131001
  Receipt Date: 20131001
  Transmission Date: 20140711
  Serious: No
  Sender: FDA-Public Use
  Company Number: None

PATIENT
  Sex: Female

DRUGS (2)
  1. AFINITOR [Suspect]
     Route: 048
     Dates: start: 20131001
  2. AFINITOR [Suspect]
     Route: 048
     Dates: start: 20131001

REACTIONS (6)
  - Stomatitis [None]
  - Rash pustular [None]
  - Thrombosis [None]
  - Nausea [None]
  - Weight decreased [None]
  - Pulmonary embolism [None]
